FAERS Safety Report 15577646 (Version 1)
Quarter: 2018Q4

REPORT INFORMATION
  Report Type: Spontaneous
  Country: IN (occurrence: IN)
  Receive Date: 20181102
  Receipt Date: 20181102
  Transmission Date: 20190205
  Serious: No
  Sender: FDA-Public Use
  Company Number: IN-LUPIN PHARMACEUTICALS INC.-2017-07218

PATIENT
  Sex: Male

DRUGS (3)
  1. MACBERY SYRUP [Concomitant]
     Indication: COUGH
     Dosage: 2.5 ML, TID
     Route: 065
     Dates: start: 20171210
  2. APITOL DROP [Concomitant]
     Indication: HYPERSENSITIVITY
     Dosage: 5 GTT, BID
     Route: 065
     Dates: start: 20171210
  3. CEFAXONE VIAL DRY+SOL 250 MG 5 ML [Suspect]
     Active Substance: CEFTRIAXONE
     Indication: LOWER RESPIRATORY TRACT INFECTION
     Dosage: 0.25 GM/ 5 ML
     Route: 065
     Dates: start: 20171210

REACTIONS (1)
  - Diarrhoea [Unknown]

NARRATIVE: CASE EVENT DATE: 20171211
